FAERS Safety Report 7541095-6 (Version None)
Quarter: 2011Q2

REPORT INFORMATION
  Report Type: 
  Country: None (occurrence: None)
  Receive Date: 20110610
  Receipt Date: 20110527
  Transmission Date: 20111010
  Serious: Yes (Other)
  Sender: FDA-Public Use
  Company Number: GB-WATSON-2011-07862

PATIENT
  Age: 15 Year
  Sex: Female

DRUGS (4)
  1. KEPPRA [Suspect]
     Dosage: 1750 MG, BID
  2. LAMOTRIGINE [Suspect]
     Indication: IDIOPATHIC GENERALISED EPILEPSY
     Dosage: 200 MG, BID
     Route: 048
     Dates: start: 20080523, end: 20100602
  3. VALPROATE SODIUM [Concomitant]
     Indication: JUVENILE MYOCLONIC EPILEPSY
     Dosage: 400 MG, BID
     Dates: start: 20110324
  4. KEPPRA [Suspect]
     Indication: GRAND MAL CONVULSION
     Dosage: 1500 MG, BID
     Route: 048

REACTIONS (4)
  - THERMAL BURN [None]
  - MOOD ALTERED [None]
  - AGGRESSION [None]
  - CONVULSION [None]
